FAERS Safety Report 7770975-1 (Version None)
Quarter: 2011Q3

REPORT INFORMATION
  Report Type: 
  Country: None (occurrence: None)
  Receive Date: 20110922
  Receipt Date: 20110301
  Transmission Date: 20111222
  Serious: No
  Sender: FDA-Public Use
  Company Number: US-ASTRAZENECA-2011SE01236

PATIENT
  Age: 35 Year
  Sex: Male
  Weight: 72.6 kg

DRUGS (3)
  1. SEROQUEL XR [Suspect]
     Indication: BIPOLAR DISORDER
     Route: 048
     Dates: start: 20100501
  2. SEROQUEL XR [Suspect]
     Dosage: HALF TABLET AT BED TIME
     Route: 048
  3. SEROQUEL XR [Suspect]
     Dosage: 1/4 TABLET ADDITIONAL
     Route: 048

REACTIONS (10)
  - INCORRECT DOSE ADMINISTERED [None]
  - NO ADVERSE EVENT [None]
  - STRESS [None]
  - CHEST PAIN [None]
  - BIPOLAR I DISORDER [None]
  - THERAPEUTIC RESPONSE UNEXPECTED [None]
  - TACHYPHRENIA [None]
  - WRONG TECHNIQUE IN DRUG USAGE PROCESS [None]
  - ANXIETY [None]
  - LOSS OF EMPLOYMENT [None]
